FAERS Safety Report 5519959-4 (Version None)
Quarter: 2007Q4

REPORT INFORMATION
  Report Type: 
  Country: None (occurrence: None)
  Receive Date: 20071116
  Receipt Date: 20070202
  Transmission Date: 20080405
  Serious: No
  Sender: FDA-Public Use
  Company Number: US-BRISTOL-MYERS SQUIBB COMPANY-13667910

PATIENT
  Sex: Female

DRUGS (1)
  1. QUESTRAN LIGHT [Suspect]
     Indication: CONSTIPATION
     Route: 048

REACTIONS (1)
  - DYSGEUSIA [None]
